FAERS Safety Report 5411411-X (Version None)
Quarter: 2007Q3

REPORT INFORMATION
  Report Type: 
  Country: None (occurrence: None)
  Receive Date: 20070810
  Receipt Date: 20070731
  Transmission Date: 20080115
  Serious: Yes (Hospitalization, Other)
  Sender: FDA-Public Use
  Company Number: 941012-005030341

PATIENT
  Age: 56 Year
  Sex: Female
  Weight: 33 kg

DRUGS (9)
  1. HALDOL [Suspect]
     Indication: PSYCHOTIC DISORDER
     Route: 048
  2. DIAZEPAM [Suspect]
  3. DIAZEPAM [Suspect]
  4. DIAZEPAM [Suspect]
     Indication: AGITATION
  5. PROCYCLIDINE HYDROCHLORIDE 2MG TAB [Suspect]
  6. PROCYCLIDINE HYDROCHLORIDE 2MG TAB [Suspect]
     Indication: DRUG USE FOR UNKNOWN INDICATION
  7. FLUPENTHIXOL [Concomitant]
     Indication: CUTANEOUS LUPUS ERYTHEMATOSUS
  8. PREDNISOLONE [Concomitant]
  9. AZATHIOPRINE [Concomitant]

REACTIONS (16)
  - AGITATION [None]
  - ASPIRATION [None]
  - COGWHEEL RIGIDITY [None]
  - CREPITATIONS [None]
  - DYSPHAGIA [None]
  - DYSPHONIA [None]
  - EXTRAPYRAMIDAL DISORDER [None]
  - HYPOKINESIA [None]
  - LARYNGEAL INFLAMMATION [None]
  - MALNUTRITION [None]
  - MASKED FACIES [None]
  - ORTHOSTATIC HYPOTENSION [None]
  - PARKINSONISM [None]
  - PRODUCTIVE COUGH [None]
  - RESTLESSNESS [None]
  - WEIGHT DECREASED [None]
